FAERS Safety Report 24743062 (Version 1)
Quarter: 2024Q4

REPORT INFORMATION
  Report Type: Spontaneous
  Country: US (occurrence: US)
  Receive Date: 20241217
  Receipt Date: 20241217
  Transmission Date: 20250115
  Serious: No
  Sender: BRISTOL-MYERS SQUIBB COMPANY
  Company Number: US-BRISTOL-MYERS SQUIBB COMPANY-2024-195251

PATIENT
  Sex: Male
  Weight: 64.86 kg

DRUGS (17)
  1. POMALYST [Suspect]
     Active Substance: POMALIDOMIDE
     Indication: Plasma cell leukaemia
     Route: 048
     Dates: start: 20241213
  2. LENALIDOMIDE [Concomitant]
     Active Substance: LENALIDOMIDE
     Indication: Product used for unknown indication
     Route: 048
     Dates: start: 20240403
  3. LENALIDOMIDE [Concomitant]
     Active Substance: LENALIDOMIDE
     Route: 048
     Dates: start: 20240904
  4. REVLIMID [Concomitant]
     Active Substance: LENALIDOMIDE
     Indication: Product used for unknown indication
     Route: 048
     Dates: start: 20240403
  5. TRAZODONE HCL [Concomitant]
     Active Substance: TRAZODONE HYDROCHLORIDE
     Indication: Product used for unknown indication
  6. LIDOCAINE [Concomitant]
     Active Substance: LIDOCAINE
     Indication: Product used for unknown indication
  7. BACLOFEN [Concomitant]
     Active Substance: BACLOFEN
     Indication: Product used for unknown indication
  8. ACYCLOVIR [Concomitant]
     Active Substance: ACYCLOVIR
     Indication: Product used for unknown indication
  9. AMBIEN [Concomitant]
     Active Substance: ZOLPIDEM TARTRATE
     Indication: Product used for unknown indication
  10. DILAUDID [Concomitant]
     Active Substance: HYDROMORPHONE HYDROCHLORIDE
     Indication: Product used for unknown indication
  11. BACTRIM DS [Concomitant]
     Active Substance: SULFAMETHOXAZOLE\TRIMETHOPRIM
     Indication: Product used for unknown indication
     Dosage: DOSE: 800-160 MG
  12. LEVOFLOXACIN [Concomitant]
     Active Substance: LEVOFLOXACIN
     Indication: Product used for unknown indication
     Dosage: DOSE: 750 MG/ 150 ML D5W
  13. OMEPRAZOLE [Concomitant]
     Active Substance: OMEPRAZOLE
     Indication: Product used for unknown indication
  14. ZARXIO [Concomitant]
     Active Substance: FILGRASTIM-SNDZ
     Indication: Product used for unknown indication
     Dosage: DOSE: 480 MCG/ O.8 ML PFS SINGLE
  15. DEXAMETHASONE [Concomitant]
     Active Substance: DEXAMETHASONE
     Indication: Product used for unknown indication
     Route: 048
  16. DIFLUCAN [Concomitant]
     Active Substance: FLUCONAZOLE
     Indication: Product used for unknown indication
  17. LYRICA [Concomitant]
     Active Substance: PREGABALIN
     Indication: Product used for unknown indication

REACTIONS (1)
  - Off label use [Unknown]
